FAERS Safety Report 6656731-6 (Version None)
Quarter: 2010Q1

REPORT INFORMATION
  Report Type: 
  Country: None (occurrence: None)
  Receive Date: 20100324
  Receipt Date: 20100316
  Transmission Date: 20100710
  Serious: Yes (Hospitalization)
  Sender: FDA-Public Use
  Company Number: DSA_42307_2010

PATIENT
  Sex: Male
  Weight: 58.0604 kg

DRUGS (19)
  1. XENAZINE [Suspect]
     Indication: TARDIVE DYSKINESIA
     Dosage: 12.5 MG QD ORAL, 12.5 MG BID ORAL
     Route: 048
     Dates: start: 20091221, end: 20091201
  2. XENAZINE [Suspect]
     Indication: TARDIVE DYSKINESIA
     Dosage: 12.5 MG QD ORAL, 12.5 MG BID ORAL
     Route: 048
     Dates: start: 20091217, end: 20091220
  3. BENAZEPRIL HYDROCHLORIDE [Concomitant]
  4. DILTIAZEM HCL [Concomitant]
  5. METOPROLOL TARTRATE [Concomitant]
  6. BUPROPION HCL [Concomitant]
  7. ALPRAZOLAM [Concomitant]
  8. DEPAKOTE [Concomitant]
  9. ZOLPIDEM [Concomitant]
  10. MELOXICAM [Concomitant]
  11. ACETAMINOPHEN AND OXYCODONE HCL [Concomitant]
  12. OXYCODONE [Concomitant]
  13. PROVIGIL [Concomitant]
  14. VIAGRA [Concomitant]
  15. NEXIUM [Concomitant]
  16. HYDROMET /01224801/ [Concomitant]
  17. RESTASIS [Concomitant]
  18. TRIAMCINOLONE [Concomitant]
  19. BLINK GEL TEARS [Concomitant]

REACTIONS (10)
  - ATAXIA [None]
  - CONFUSIONAL STATE [None]
  - COUGH [None]
  - FEEDING DISORDER [None]
  - GAIT DISTURBANCE [None]
  - HEADACHE [None]
  - IRRITABILITY [None]
  - PNEUMONIA [None]
  - PYREXIA [None]
  - THINKING ABNORMAL [None]
